FAERS Safety Report 16860164 (Version 2)
Quarter: 2019Q4

REPORT INFORMATION
  Report Type: Report from Study
  Country: US (occurrence: US)
  Receive Date: 20190927
  Receipt Date: 20191115
  Transmission Date: 20200122
  Serious: Yes (Hospitalization)
  Sender: FDA-Public Use
  Company Number: US-JNJFOC-20190934911

PATIENT
  Age: 64 Year
  Sex: Male

DRUGS (12)
  1. BETAMETHASONE DIPROPIONATE. [Concomitant]
     Active Substance: BETAMETHASONE DIPROPIONATE
  2. ACETAMINOPHEN EXTRA STRENGTH [Concomitant]
     Active Substance: ACETAMINOPHEN
  3. IMBRUVICA [Suspect]
     Active Substance: IBRUTINIB
     Indication: CHRONIC LYMPHOCYTIC LEUKAEMIA
     Dosage: 420 MG, QD
     Route: 048
     Dates: start: 20181204
  4. IBU [Concomitant]
     Active Substance: IBUPROFEN
  5. LOTREL                             /01388302/ [Concomitant]
     Active Substance: LOTEPREDNOL ETABONATE
  6. PAZEO [Concomitant]
     Active Substance: OLOPATADINE HYDROCHLORIDE
  7. IMBRUVICA [Suspect]
     Active Substance: IBRUTINIB
     Dosage: 280 MG, QD
     Route: 048
  8. PROMACTA [Concomitant]
     Active Substance: ELTROMBOPAG OLAMINE
  9. PEPCID                             /00305201/ [Concomitant]
     Active Substance: ALUMINUM HYDROXIDE\MAGNESIUM CARBONATE
  10. MAGNESIUM [Concomitant]
     Active Substance: MAGNESIUM
  11. KETOCONAZOLE. [Concomitant]
     Active Substance: KETOCONAZOLE
  12. MULTI VITAMIN                      /08408501/ [Concomitant]
     Active Substance: VITAMINS

REACTIONS (10)
  - Skin atrophy [Recovered/Resolved]
  - Swelling of eyelid [Unknown]
  - Genital herpes [Unknown]
  - Cellulitis [Unknown]
  - Rash papular [Unknown]
  - Fatigue [Unknown]
  - Rash [Unknown]
  - Cognitive disorder [Unknown]
  - Skin laceration [Recovered/Resolved]
  - Muscle spasms [Unknown]

NARRATIVE: CASE EVENT DATE: 201906
